FAERS Safety Report 7526269-2 (Version None)
Quarter: 2011Q2

REPORT INFORMATION
  Report Type: 
  Country: None (occurrence: None)
  Receive Date: 20110606
  Receipt Date: 20101227
  Transmission Date: 20111010
  Serious: Yes (Other)
  Sender: FDA-Public Use
  Company Number: US-BAYER-201016048NA

PATIENT
  Age: 37 Year
  Sex: Female
  Weight: 75.737 kg

DRUGS (13)
  1. NAPROSYN [Concomitant]
     Indication: MIGRAINE
  2. YASMIN [Suspect]
     Dosage: UNK UNK, QD
     Route: 048
  3. ALPRAZOLAM [Concomitant]
     Dosage: 0.25 MG, PRN
     Route: 048
  4. LOESTRIN 1.5/30 [Concomitant]
     Dosage: UNK UNK, QD
     Route: 048
  5. EXCEDRIN (MIGRAINE) [Concomitant]
  6. YAZ [Suspect]
     Indication: CONTRACEPTION
     Dosage: UNK UNK, QD
     Route: 048
     Dates: start: 20080101, end: 20090101
  7. FIORICET [Concomitant]
     Indication: MIGRAINE
     Dosage: UNK
     Dates: start: 20071001
  8. ACETAMINOPHEN [Concomitant]
     Dosage: UNK UNK, PRN
     Route: 048
  9. FLUOXETINE HCL [Concomitant]
     Indication: DEPRESSION
     Dosage: UNK
     Dates: start: 20100101
  10. IBUPROFEN [Concomitant]
     Dosage: 200 MG, PRN
     Route: 048
  11. BUTALBITAL [Concomitant]
     Indication: MIGRAINE
     Dosage: UNK
     Dates: start: 20050101, end: 20100101
  12. XANAX [Concomitant]
     Indication: ANXIETY
     Dosage: 0.25 MG, UNK
     Dates: start: 20070301
  13. OMEPRAZOLE [Concomitant]
     Indication: GASTROOESOPHAGEAL REFLUX DISEASE
     Dosage: UNK UNK, PRN
     Route: 048
     Dates: start: 20090101, end: 20100101

REACTIONS (9)
  - OESOPHAGITIS [None]
  - CHOLECYSTITIS CHRONIC [None]
  - OESOPHAGEAL INJURY [None]
  - CHOLECYSTECTOMY [None]
  - INJURY [None]
  - HIATUS HERNIA [None]
  - CHOLELITHIASIS [None]
  - GALLBLADDER CHOLESTEROLOSIS [None]
  - MENTAL DISORDER [None]
